FAERS Safety Report 20201986 (Version 2)
Quarter: 2022Q1

REPORT INFORMATION
  Report Type: Spontaneous
  Country: JP (occurrence: JP)
  Receive Date: 20211217
  Receipt Date: 20220201
  Transmission Date: 20220424
  Serious: Yes (Other)
  Sender: FDA-Public Use
  Company Number: JP-ONO-2021JP031636

PATIENT
  Age: 72 Year
  Sex: Female

DRUGS (5)
  1. BRAFTOVI [Suspect]
     Active Substance: ENCORAFENIB
     Indication: Colon cancer
     Dosage: 300 MG, EVERYDAY
     Route: 048
     Dates: start: 20211202, end: 20211203
  2. BRAFTOVI [Suspect]
     Active Substance: ENCORAFENIB
     Dosage: 225 MG, EVERYDAY
     Route: 048
     Dates: start: 20211216
  3. MEKTOVI [Suspect]
     Active Substance: BINIMETINIB
     Indication: Colon cancer
     Dosage: 90 MG, EVERYDAY
     Route: 048
     Dates: start: 20211202, end: 20211203
  4. CETUXIMAB [Concomitant]
     Active Substance: CETUXIMAB
     Indication: Colon cancer
     Dosage: 400 MG/M2
     Route: 041
     Dates: start: 20211202, end: 20211202
  5. CETUXIMAB [Concomitant]
     Active Substance: CETUXIMAB
     Dosage: 400 MG/M2
     Route: 041
     Dates: start: 20211216

REACTIONS (1)
  - Serous retinal detachment [Recovered/Resolved]

NARRATIVE: CASE EVENT DATE: 20211203
